FAERS Safety Report 6255866-X (Version None)
Quarter: 2009Q3

REPORT INFORMATION
  Report Type: 
  Country: None (occurrence: None)
  Receive Date: 20090703
  Receipt Date: 20090623
  Transmission Date: 20100115
  Serious: Yes (Other)
  Sender: FDA-Public Use
  Company Number: JP-ROCHE-622698

PATIENT
  Sex: Female
  Weight: 17 kg

DRUGS (3)
  1. TAMIFLU [Suspect]
     Indication: INFLUENZA
     Dosage: DRUG REPORTED AS: TAMIFLU DRY SYRUP 3%.
     Route: 048
     Dates: start: 20090220, end: 20090220
  2. MUCODYNE [Concomitant]
     Route: 048
     Dates: start: 20090220, end: 20090220
  3. CALONAL [Concomitant]
     Dosage: AT THE THERMACOGENESIS PAIN
     Route: 048
     Dates: start: 20090220

REACTIONS (2)
  - CONVULSION [None]
  - DELIRIUM FEBRILE [None]
